FAERS Safety Report 25671413 (Version 3)
Quarter: 2025Q3

REPORT INFORMATION
  Report Type: Spontaneous
  Country: US (occurrence: US)
  Receive Date: 20250812
  Receipt Date: 20250815
  Transmission Date: 20251021
  Serious: No
  Sender: AMGEN
  Company Number: US-AMGEN-USASP2025157155

PATIENT
  Age: 38 Year
  Sex: Female
  Weight: 76 kg

DRUGS (1)
  1. NEULASTA [Suspect]
     Active Substance: PEGFILGRASTIM
     Indication: Prophylaxis
     Route: 065

REACTIONS (2)
  - Device use error [Unknown]
  - Device malfunction [Unknown]

NARRATIVE: CASE EVENT DATE: 20250618
